FAERS Safety Report 6101625-8 (Version None)
Quarter: 2009Q1

REPORT INFORMATION
  Report Type: 
  Country: None (occurrence: None)
  Receive Date: 20090227
  Receipt Date: 20090218
  Transmission Date: 20090719
  Serious: Yes (Death, Hospitalization)
  Sender: FDA-Public Use
  Company Number: 2008US003445

PATIENT
  Age: 67 Year
  Sex: Female

DRUGS (2)
  1. PROGRAF [Suspect]
     Indication: STEM CELL TRANSPLANT
     Dosage: 1 MG BID, ORAL
     Route: 048
  2. CELLCEPT [Concomitant]

REACTIONS (13)
  - ACUTE GRAFT VERSUS HOST DISEASE IN INTESTINE [None]
  - ACUTE GRAFT VERSUS HOST DISEASE IN LIVER [None]
  - ACUTE GRAFT VERSUS HOST DISEASE IN SKIN [None]
  - BLOOD GLUCOSE INCREASED [None]
  - DIARRHOEA [None]
  - DRY MOUTH [None]
  - HYPOALBUMINAEMIA [None]
  - MUCOSAL INFLAMMATION [None]
  - NECROTISING FASCIITIS [None]
  - OEDEMA PERIPHERAL [None]
  - PANCYTOPENIA [None]
  - RHINOVIRUS INFECTION [None]
  - STAPHYLOCOCCAL INFECTION [None]
